FAERS Safety Report 4539293-9 (Version None)
Quarter: 2004Q4

REPORT INFORMATION
  Report Type: 
  Country: None (occurrence: None)
  Receive Date: 20041222
  Receipt Date: 20041209
  Transmission Date: 20050328
  Serious: Yes (Other)
  Sender: FDA-Public Use
  Company Number: 2004110638

PATIENT
  Age: 41 Year
  Sex: Female

DRUGS (9)
  1. PHENYTOIN SODIUM [Suspect]
     Indication: EPILEPSY
     Dosage: ORAL
     Route: 048
  2. VENLAFAXINE HCL [Concomitant]
  3. HYDROXYZINE HCL [Concomitant]
  4. CELECOXIB (CELECOXIB) [Concomitant]
  5. MOMETASONE FUROATE [Concomitant]
  6. ACETAMINOPHEN [Concomitant]
  7. BUDESONIDE (BUDESONIDE) [Concomitant]
  8. FORMOTEROL FUMARATE (FORMOTEROL FUMARATE) [Concomitant]
  9. ALL OTHER THERAPEUTIC PRODUCTS (ALL OTHER THERAPEUTIC PRODUCTS) [Concomitant]

REACTIONS (2)
  - EPILEPSY [None]
  - STOOL ANALYSIS ABNORMAL [None]
